FAERS Safety Report 11357797 (Version 1)
Quarter: 2015Q3

REPORT INFORMATION
  Report Type: Spontaneous
  Country: US (occurrence: US)
  Receive Date: 20150803
  Receipt Date: 20150803
  Transmission Date: 20151125
  Serious: No
  Sender: FDA-Public Use
  Company Number: US-ELI_LILLY_AND_COMPANY-US201012004807

PATIENT
  Age: 49 Year
  Sex: Male

DRUGS (6)
  1. STRATTERA [Suspect]
     Active Substance: ATOMOXETINE HYDROCHLORIDE
     Dosage: 40 MG, EACH EVENING
  2. STRATTERA [Suspect]
     Active Substance: ATOMOXETINE HYDROCHLORIDE
     Dosage: 40 MG, 2/D
  3. VITAMINS NOS [Concomitant]
     Active Substance: VITAMINS
  4. STRATTERA [Suspect]
     Active Substance: ATOMOXETINE HYDROCHLORIDE
     Dosage: 30 MG, EACH MORNING
  5. STRATTERA [Suspect]
     Active Substance: ATOMOXETINE HYDROCHLORIDE
     Indication: ATTENTION DEFICIT/HYPERACTIVITY DISORDER
     Dosage: 60 MG, EACH MORNING
  6. STRATTERA [Suspect]
     Active Substance: ATOMOXETINE HYDROCHLORIDE
     Dosage: 40 MG, EACH EVENING

REACTIONS (9)
  - Loss of libido [Unknown]
  - Sexual dysfunction [Unknown]
  - Headache [Unknown]
  - Heart rate increased [Unknown]
  - Insomnia [Unknown]
  - Abdominal discomfort [Unknown]
  - Constipation [Unknown]
  - Urinary hesitation [Recovering/Resolving]
  - Peripheral coldness [Unknown]
